FAERS Safety Report 9359062 (Version 1)
Quarter: 2013Q2

REPORT INFORMATION
  Report Type: Spontaneous
  Country: US (occurrence: US)
  Receive Date: 20130620
  Receipt Date: 20130620
  Transmission Date: 20140414
  Serious: Yes (Other)
  Sender: FDA-Public Use
  Company Number: US-PURDUE-USA-2013-0103652

PATIENT
  Sex: Female

DRUGS (3)
  1. BUTRANS [Suspect]
     Indication: PAIN
     Dosage: 20 MCG/HR, WEEKLY
     Route: 062
     Dates: start: 201203, end: 20130610
  2. BUTRANS [Suspect]
     Dosage: 10 MCG/HR, WEEKLY
     Route: 062
     Dates: start: 201304, end: 20130610
  3. MORPHINE SULFATE (SIMILAR TO NDA 19-516) [Concomitant]
     Indication: PAIN
     Dosage: 15 MG, UNK
     Route: 048

REACTIONS (10)
  - Chemical burn of skin [Not Recovered/Not Resolved]
  - Application site pain [Not Recovered/Not Resolved]
  - Application site exfoliation [Unknown]
  - Application site pruritus [Unknown]
  - Application site erythema [Not Recovered/Not Resolved]
  - Application site vesicles [Unknown]
  - Application site discharge [Unknown]
  - Application site dryness [Unknown]
  - Incorrect dose administered [Unknown]
  - Drug withdrawal syndrome [Unknown]
